FAERS Safety Report 5659321-7 (Version None)
Quarter: 2008Q1

REPORT INFORMATION
  Report Type: 
  Country: None (occurrence: None)
  Receive Date: 20080311
  Receipt Date: 20070808
  Transmission Date: 20080703
  Serious: Yes (Other)
  Sender: FDA-Public Use
  Company Number: US-BAYER-200712182BCC

PATIENT
  Age: 21 Year
  Sex: Female
  Weight: 63 kg

DRUGS (4)
  1. ALEVE [Suspect]
     Indication: TOOTHACHE
     Dosage: AS USED: 440 MG  UNIT DOSE: 220 MG
     Route: 048
     Dates: start: 20070710
  2. ADVIL [Concomitant]
     Indication: TOOTHACHE
     Route: 048
     Dates: start: 20070709
  3. AMOXICILLIN [Concomitant]
  4. PEN [Concomitant]

REACTIONS (5)
  - DIARRHOEA [None]
  - DISORIENTATION [None]
  - DYSPNOEA [None]
  - FREQUENT BOWEL MOVEMENTS [None]
  - NAUSEA [None]
